FAERS Safety Report 18178260 (Version 4)
Quarter: 2025Q1

REPORT INFORMATION
  Report Type: Spontaneous
  Country: US (occurrence: US)
  Receive Date: 20200821
  Receipt Date: 20250310
  Transmission Date: 20250408
  Serious: No
  Sender: GILEAD
  Company Number: US-GILEAD-2020-0491252

PATIENT
  Age: 64 Year
  Sex: Male
  Weight: 73.923 kg

DRUGS (25)
  1. TRUVADA [Suspect]
     Active Substance: EMTRICITABINE\TENOFOVIR DISOPROXIL FUMARATE
     Indication: HIV infection
     Route: 048
     Dates: start: 2004, end: 201901
  2. TRUVADA [Suspect]
     Active Substance: EMTRICITABINE\TENOFOVIR DISOPROXIL FUMARATE
     Route: 048
     Dates: start: 200508, end: 201901
  3. BIKTARVY [Concomitant]
     Active Substance: BICTEGRAVIR SODIUM\EMTRICITABINE\TENOFOVIR ALAFENAMIDE FUMARATE
     Dates: start: 201901
  4. NORVIR [Concomitant]
     Active Substance: RITONAVIR
     Indication: HIV infection
     Dates: start: 201812
  5. REYATAZ [Concomitant]
     Active Substance: ATAZANAVIR SULFATE
     Indication: HIV infection
     Dates: start: 201812
  6. SUSTIVA [Concomitant]
     Active Substance: EFAVIRENZ
     Indication: HIV infection
  7. ZERIT [Concomitant]
     Active Substance: STAVUDINE
     Indication: HIV infection
  8. PROZAC [Concomitant]
     Active Substance: FLUOXETINE HYDROCHLORIDE
     Indication: Depression
     Dates: start: 1990
  9. ATORVASTATIN [Concomitant]
     Active Substance: ATORVASTATIN
     Indication: Hyperlipidaemia
     Dates: start: 1990
  10. CETIRIZINE HYDROCHLORIDE [Concomitant]
     Active Substance: CETIRIZINE HYDROCHLORIDE
     Indication: Hypersensitivity
     Dates: start: 2006
  11. LISINOPRIL [Concomitant]
     Active Substance: LISINOPRIL
     Indication: Hypertension
     Dates: start: 2006
  12. LOPERAMIDE [Concomitant]
     Active Substance: LOPERAMIDE
     Indication: Diarrhoea
     Dates: start: 1990
  13. SUDOGEST [Concomitant]
     Active Substance: PSEUDOEPHEDRINE HYDROCHLORIDE
     Indication: Nasal congestion
     Dates: start: 2014
  14. MOMETASONE FUROATE [Concomitant]
     Active Substance: MOMETASONE FUROATE
     Indication: Hypersensitivity
     Dates: start: 2006
  15. PROAIR BRONQUIAL [Concomitant]
     Indication: Asthma
     Dates: start: 2006
  16. NAPROXEN [Concomitant]
     Active Substance: NAPROXEN
     Indication: Muscle relaxant therapy
     Dates: start: 2014
  17. VICKS NYQUIL [Concomitant]
     Active Substance: ACETAMINOPHEN\DEXTROMETHORPHAN HYDROBROMIDE\DOXYLAMINE SUCCINATE
     Indication: Nasopharyngitis
  18. ALKA-SELTZER ORIGINAL [Concomitant]
     Active Substance: ANHYDROUS CITRIC ACID\ASPIRIN\SODIUM BICARBONATE
     Indication: Headache
  19. ALKA-SELTZER ORIGINAL [Concomitant]
     Active Substance: ANHYDROUS CITRIC ACID\ASPIRIN\SODIUM BICARBONATE
     Indication: Hypersensitivity
  20. VICKS DAYQUIL [Concomitant]
     Active Substance: DEXTROMETHORPHAN HYDROBROMIDE\GUAIFENESIN
  21. CRIXIVAN [Concomitant]
     Active Substance: INDINAVIR SULFATE
  22. EPIVIR [Concomitant]
     Active Substance: LAMIVUDINE
  23. RETROVIR [Concomitant]
     Active Substance: ZIDOVUDINE
  24. VIDEX EC [Concomitant]
     Active Substance: DIDANOSINE
  25. VIRACEPT [Concomitant]
     Active Substance: NELFINAVIR MESYLATE

REACTIONS (11)
  - Osteopenia [Not Recovered/Not Resolved]
  - Hepatic function abnormal [Not Recovered/Not Resolved]
  - Injury [Unknown]
  - Bone pain [Unknown]
  - Anxiety [Not Recovered/Not Resolved]
  - Fear of falling [Not Recovered/Not Resolved]
  - Depression [Not Recovered/Not Resolved]
  - Loss of personal independence in daily activities [Unknown]
  - Anhedonia [Not Recovered/Not Resolved]
  - Emotional distress [Not Recovered/Not Resolved]
  - Pain [Not Recovered/Not Resolved]

NARRATIVE: CASE EVENT DATE: 20190101
